FAERS Safety Report 19789258 (Version 1)
Quarter: 2021Q3

REPORT INFORMATION
  Report Type: Spontaneous
  Country: CA (occurrence: CA)
  Receive Date: 20210905
  Receipt Date: 20210905
  Transmission Date: 20211014
  Serious: Yes (Hospitalization)
  Sender: FDA-Public Use
  Company Number: CA-TEVA-2021-CA-1948298

PATIENT
  Age: 69 Year
  Sex: Female
  Weight: 114 kg

DRUGS (15)
  1. DOXORUBICIN HYDROCHLORIDE INJECTION [Suspect]
     Active Substance: DOXORUBICIN HYDROCHLORIDE
     Indication: BLADDER CANCER
  2. ATORVASTATIN [Concomitant]
     Active Substance: ATORVASTATIN
  3. VINBLASTINE SULFATE INJECTION [Suspect]
     Active Substance: VINBLASTINE SULFATE
     Indication: BLADDER CANCER
  4. LAX?A?DAY [Concomitant]
     Active Substance: POLYETHYLENE GLYCOL 3350
  5. TRAJENTA [Concomitant]
     Active Substance: LINAGLIPTIN
  6. DEXAMETHASONE. [Concomitant]
     Active Substance: DEXAMETHASONE
  7. CISPLATIN INJECTION [Suspect]
     Active Substance: CISPLATIN
     Indication: BLADDER CANCER
  8. D?TABS [Concomitant]
     Active Substance: CHOLECALCIFEROL
  9. FILGRASTIM [Concomitant]
     Active Substance: FILGRASTIM
  10. PROCHLORPERAZINE. [Concomitant]
     Active Substance: PROCHLORPERAZINE
  11. METHOTREXATE. [Suspect]
     Active Substance: METHOTREXATE
     Indication: BLADDER CANCER
  12. ONDANSETRON [Concomitant]
     Active Substance: ONDANSETRON
  13. EMEND [Concomitant]
     Active Substance: APREPITANT
  14. GLICLAZIDE [Concomitant]
     Active Substance: GLICLAZIDE
  15. LORAZEPAM. [Concomitant]
     Active Substance: LORAZEPAM

REACTIONS (1)
  - Febrile neutropenia [Recovered/Resolved]
